FAERS Safety Report 8160343-5 (Version None)
Quarter: 2012Q1

REPORT INFORMATION
  Report Type: 
  Country: None (occurrence: None)
  Receive Date: 20120223
  Receipt Date: 20120220
  Transmission Date: 20120608
  Serious: Yes (Other)
  Sender: FDA-Public Use
  Company Number: US-PFIZER INC-2012044836

PATIENT
  Sex: Female
  Weight: 77.098 kg

DRUGS (3)
  1. AMBIEN [Concomitant]
     Dosage: UNK
  2. PRISTIQ [Suspect]
     Indication: DEPRESSION
     Dosage: 100 MG, 1X/DAY
     Route: 048
     Dates: end: 20120216
  3. KLONOPIN [Concomitant]
     Dosage: UNK

REACTIONS (9)
  - WITHDRAWAL SYNDROME [None]
  - DEPRESSION [None]
  - NAUSEA [None]
  - HEADACHE [None]
  - ANXIETY [None]
  - PAIN [None]
  - HOT FLUSH [None]
  - NIGHTMARE [None]
  - IRRITABILITY [None]
